FAERS Safety Report 16504106 (Version 3)
Quarter: 2019Q3

REPORT INFORMATION
  Report Type: Spontaneous
  Country: US (occurrence: US)
  Receive Date: 20190701
  Receipt Date: 20190822
  Transmission Date: 20191004
  Serious: No
  Sender: FDA-Public Use
  Company Number: US-GLAXOSMITHKLINE-US2019115924

PATIENT
  Sex: Female

DRUGS (1)
  1. RYTHMOL [Suspect]
     Active Substance: PROPAFENONE HYDROCHLORIDE
     Indication: ATRIAL FIBRILLATION
     Dosage: 225 MG, BID
     Route: 048

REACTIONS (5)
  - Product complaint [Unknown]
  - Product dose omission [Unknown]
  - Intentional underdose [Unknown]
  - Drug ineffective [Unknown]
  - Product dispensing error [Unknown]
